FAERS Safety Report 8849549 (Version 1)
Quarter: 2012Q4

REPORT INFORMATION
  Report Type: Spontaneous
  Country: US (occurrence: None)
  Receive Date: 20121018
  Receipt Date: 20121018
  Transmission Date: 20130627
  Serious: Yes (Life-Threatening)
  Sender: FDA-Public Use
  Company Number: None

PATIENT
  Age: 11 Year
  Sex: Female
  Weight: 62.14 kg

DRUGS (2)
  1. OLANZAPINE [Suspect]
     Indication: BIPOLAR AFFECTIVE DISORDER, MANIC
     Route: 048
     Dates: start: 20101020, end: 20121017
  2. OLANZAPINE [Suspect]
     Indication: PSYCHOTIC
     Route: 048
     Dates: start: 20101020, end: 20121017

REACTIONS (4)
  - Weight increased [None]
  - Asthma [None]
  - Hepatic steatosis [None]
  - Insulin resistance [None]
